FAERS Safety Report 5859180-3 (Version None)
Quarter: 2008Q3

REPORT INFORMATION
  Report Type: 
  Country: None (occurrence: None)
  Receive Date: 20080827
  Receipt Date: 20080815
  Transmission Date: 20090109
  Serious: Yes (Other)
  Sender: FDA-Public Use
  Company Number: US-TYCO HEALTHCARE/MALLINCKRODT-T200801255

PATIENT

DRUGS (9)
  1. HYDROMORPHONE HCL [Suspect]
     Indication: SPINAL CORD INJURY
     Dosage: 2 MG, QID (Q6H)
     Route: 048
     Dates: start: 20080718, end: 20080729
  2. HYDROMORPHONE HCL [Suspect]
     Dosage: 4 MG, (DOSE DECREASED)
     Route: 048
     Dates: start: 20080701, end: 20080815
  3. PHENERGAN HCL [Concomitant]
     Indication: RETCHING
     Dosage: UNK, PRN
     Route: 048
  4. VALIUM [Concomitant]
     Indication: MUSCLE SPASMS
     Dosage: 10 MG, UNK
     Route: 048
  5. BENADRYL [Concomitant]
     Indication: MIGRAINE
     Dosage: UNK, PRN
     Route: 048
  6. SOMA [Concomitant]
     Indication: MIGRAINE
     Dosage: 350 MG, UNK
     Route: 048
  7. CYMBALTA [Concomitant]
     Indication: PAIN
     Dosage: 30 MG, UNK
     Route: 048
  8. ASPIRIN [Concomitant]
     Indication: CARDIAC DISORDER
     Dosage: 81 MG, PRN
     Route: 048
  9. DILAUDID [Concomitant]
     Indication: PAIN
     Dosage: 2 MG, QID
     Route: 048
     Dates: start: 20070101, end: 20080701

REACTIONS (6)
  - BLOOD PRESSURE INCREASED [None]
  - DEHYDRATION [None]
  - DRUG INEFFECTIVE [None]
  - DRY MOUTH [None]
  - LOSS OF CONSCIOUSNESS [None]
  - PAIN [None]
